FAERS Safety Report 5123650-6 (Version None)
Quarter: 2006Q4

REPORT INFORMATION
  Report Type: 
  Country: None (occurrence: None)
  Receive Date: 20060910
  Receipt Date: 20060214
  Transmission Date: 20070319
  Serious: Yes (Hospitalization)
  Sender: FDA-Public Use
  Company Number: US_0402101144

PATIENT
  Age: 25 Year
  Sex: Female
  Weight: 53.6 kg

DRUGS (3)
  1. ILETIN [Suspect]
     Indication: DIABETES MELLITUS
     Dosage: 20 U DAILY (1/D) SUBCUTANEOUS
     Route: 058
     Dates: start: 19620101
  2. ILETIN [Suspect]
     Indication: BLOOD GLUCOSE INCREASED
     Dosage: AS NEEDED, SUBCUTANEOUS
     Route: 058
     Dates: start: 19620101
  3. PRENATAL VITAMINS [Concomitant]

REACTIONS (3)
  - BLOOD GLUCOSE DECREASED [None]
  - DRUG EXPOSURE DURING PREGNANCY [None]
  - DRUG EXPOSURE VIA BREAST MILK [None]
